FAERS Safety Report 9626835 (Version 3)
Quarter: 2013Q4

REPORT INFORMATION
  Report Type: Spontaneous
  Country: US (occurrence: US)
  Receive Date: 20131016
  Receipt Date: 20131112
  Transmission Date: 20140711
  Serious: Yes (Congenital Anomaly, Other)
  Sender: FDA-Public Use
  Company Number: US-PFIZER INC-2013294943

PATIENT
  Sex: Female

DRUGS (9)
  1. ZOLOFT [Suspect]
     Indication: ANXIETY
     Dosage: UNK
     Route: 064
     Dates: start: 20050823
  2. ZOLOFT [Suspect]
     Indication: DEPRESSION
  3. ZOLOFT [Suspect]
     Indication: AFFECTIVE DISORDER
  4. NITROFURANTOIN MONO/MAC [Concomitant]
     Dosage: 100 MG, UNK
     Route: 064
  5. FUROSEMIDE [Concomitant]
     Dosage: 20 MG, UNK
     Route: 064
  6. ZYRTEC [Concomitant]
     Dosage: 10 MG, UNK
     Route: 064
  7. FOLIC ACID [Concomitant]
     Dosage: 1 MG, UNK
     Route: 064
  8. SUDAFED [Concomitant]
     Dosage: UNK
     Route: 064
  9. BENADRYL [Concomitant]
     Dosage: UNK
     Route: 064

REACTIONS (2)
  - Maternal exposure during pregnancy [Unknown]
  - Talipes [Unknown]
